FAERS Safety Report 7800299-5 (Version None)
Quarter: 2011Q4

REPORT INFORMATION
  Report Type: 
  Country: None (occurrence: None)
  Receive Date: 20111006
  Receipt Date: 20110928
  Transmission Date: 20120403
  Serious: Yes (Hospitalization)
  Sender: FDA-Public Use
  Company Number: IT-GLAXOSMITHKLINE-B0752976A

PATIENT
  Sex: Female

DRUGS (1)
  1. LANOXIN [Suspect]
     Indication: CARDIAC DISORDER
     Dosage: 1TAB PER DAY
     Route: 048
     Dates: start: 20110606, end: 20110628

REACTIONS (2)
  - BRADYCARDIA [None]
  - VOMITING [None]
